FAERS Safety Report 23758120 (Version 1)
Quarter: 2024Q2

REPORT INFORMATION
  Report Type: Spontaneous
  Country: US (occurrence: US)
  Receive Date: 20240418
  Receipt Date: 20240418
  Transmission Date: 20240716
  Serious: No
  Sender: FDA-Public Use
  Company Number: US-TEVA-VS-3179048

PATIENT

DRUGS (1)
  1. BUPROPION [Suspect]
     Active Substance: BUPROPION
     Indication: Depressive symptom
     Dosage: WHITE/ROUND/WPI 3331
     Route: 065

REACTIONS (2)
  - Product odour abnormal [Unknown]
  - Drug ineffective [Unknown]
